FAERS Safety Report 23513036 (Version 1)
Quarter: 2024Q1

REPORT INFORMATION
  Report Type: Spontaneous
  Country: US (occurrence: None)
  Receive Date: 20240209
  Receipt Date: 20240209
  Transmission Date: 20240410
  Serious: Yes (Hospitalization)
  Sender: FDA-Public Use
  Company Number: None

PATIENT
  Sex: Male

DRUGS (5)
  1. MYCOPHENOLIC ACID [Suspect]
     Active Substance: MYCOPHENOLIC ACID
     Indication: Heart transplant
     Dosage: FREQUENCY : TWICE A DAY;?
     Route: 048
     Dates: start: 20210226
  2. NEORAL [Suspect]
     Active Substance: CYCLOSPORINE
     Indication: Heart transplant
     Dosage: FREQUENCY : TWICE A DAY;?
     Route: 048
     Dates: start: 20210119
  3. DILTIAZEM [Concomitant]
     Active Substance: DILTIAZEM
  4. ALENDRONATE [Concomitant]
     Active Substance: ALENDRONATE SODIUM
  5. LOSARTAN [Concomitant]
     Active Substance: LOSARTAN

REACTIONS (1)
  - Pneumonia fungal [None]
